FAERS Safety Report 9019628 (Version 2)
Quarter: 2013Q1

REPORT INFORMATION
  Report Type: Spontaneous
  Country: US (occurrence: US)
  Receive Date: 20130118
  Receipt Date: 20130207
  Transmission Date: 20140127
  Serious: Yes (Other)
  Sender: FDA-Public Use
  Company Number: US-PERRIGO-13US000291

PATIENT
  Age: 47 None
  Sex: Male
  Weight: 113.38 kg

DRUGS (1)
  1. DAYTIME PE ORIG LIQ 656 [Suspect]
     Indication: NASOPHARYNGITIS
     Dosage: 30 ML, Q4H
     Route: 048
     Dates: start: 20130101, end: 20130109

REACTIONS (9)
  - Pulmonary haemorrhage [Recovered/Resolved]
  - Haematemesis [Recovered/Resolved]
  - Choking [Recovered/Resolved]
  - Epistaxis [Recovered/Resolved]
  - Diarrhoea [Recovered/Resolved]
  - Retching [Recovered/Resolved]
  - Accidental exposure to product [Recovered/Resolved]
  - Incorrect storage of drug [Recovered/Resolved]
  - Incorrect drug administration duration [Recovered/Resolved]
